FAERS Safety Report 24172815 (Version 1)
Quarter: 2024Q3

REPORT INFORMATION
  Report Type: Other
  Country: LK (occurrence: LK)
  Receive Date: 20240805
  Receipt Date: 20240805
  Transmission Date: 20241017
  Serious: Yes (Other)
  Sender: PL DEVELOPMENTS
  Company Number: LK-P+L Developments of Newyork Corporation-2160009

PATIENT
  Age: 67 Year
  Sex: Male

DRUGS (5)
  1. OMEPRAZOLE MAGNESIUM [Suspect]
     Active Substance: OMEPRAZOLE MAGNESIUM
     Indication: Dyspepsia
     Route: 065
  2. CORIANDER [Suspect]
     Active Substance: CORIANDER
     Route: 065
  3. COSCINIUM BLUMEANUM [Concomitant]
     Route: 065
  4. ALPINIA GALANGA LEAF [Suspect]
     Active Substance: ALPINIA GALANGA LEAF
     Route: 065
  5. ZINGIBER OFFICINALE (GINGER) ROOT [Suspect]
     Active Substance: GINGER
     Route: 065

REACTIONS (1)
  - Insulin autoimmune syndrome [Recovered/Resolved]
